FAERS Safety Report 6929316-1 (Version None)
Quarter: 2010Q3

REPORT INFORMATION
  Report Type: 
  Country: None (occurrence: None)
  Receive Date: 20100813
  Receipt Date: 20100806
  Transmission Date: 20110219
  Serious: Yes (Other)
  Sender: FDA-Public Use
  Company Number: 661582

PATIENT
  Sex: Female

DRUGS (5)
  1. HEPARIN SODIUM INJECTION [Suspect]
     Indication: ANTICOAGULANT THERAPY
     Dates: start: 20080708, end: 20080718
  2. HEPARIN SODIUM INJECTION [Suspect]
     Indication: ANTICOAGULANT THERAPY
     Dosage: 2000 UNITS, INTRAVENOUS BOLUS
     Route: 040
     Dates: start: 20080708, end: 20080718
  3. HEPARIN SODIUM [Suspect]
     Indication: ANTICOAGULANT THERAPY
     Dates: start: 20080708, end: 20080718
  4. HEPARIN SODIUM [Suspect]
     Indication: ANTICOAGULANT THERAPY
     Dates: start: 20080708, end: 20080718
  5. LOVENOX [Suspect]
     Indication: ANTICOAGULANT THERAPY
     Dates: start: 20080708, end: 20080718

REACTIONS (15)
  - CEREBROVASCULAR ACCIDENT [None]
  - COGNITIVE DISORDER [None]
  - DECUBITUS ULCER [None]
  - GASTROINTESTINAL DISORDER [None]
  - HEPARIN-INDUCED THROMBOCYTOPENIA [None]
  - INFECTION [None]
  - MENTAL DISORDER [None]
  - MULTIPLE INJURIES [None]
  - MUSCULOSKELETAL DISORDER [None]
  - PAIN [None]
  - PARALYSIS [None]
  - RENAL FAILURE [None]
  - RESPIRATORY FAILURE [None]
  - RESPIRATORY PARALYSIS [None]
  - VOCAL CORD PARALYSIS [None]
